FAERS Safety Report 8829208 (Version 1)
Quarter: 2012Q4

REPORT INFORMATION
  Report Type: Spontaneous
  Country: US (occurrence: None)
  Receive Date: 20121005
  Receipt Date: 20121005
  Transmission Date: 20130627
  Serious: No
  Sender: FDA-Public Use
  Company Number: None

PATIENT
  Age: 40 Year
  Sex: Female
  Weight: 53.07 kg

DRUGS (2)
  1. CHANTIX [Suspect]
     Dates: start: 20120915
  2. CHANTIX [Suspect]
     Dates: start: 20120916

REACTIONS (3)
  - Dizziness [None]
  - Swollen tongue [None]
  - Chest discomfort [None]
